FAERS Safety Report 9787655 (Version 1)
Quarter: 2013Q4

REPORT INFORMATION
  Report Type: Spontaneous
  Country: KR (occurrence: KR)
  Receive Date: 20131230
  Receipt Date: 20131230
  Transmission Date: 20140711
  Serious: Yes (Death)
  Sender: FDA-Public Use
  Company Number: KR-JNJFOC-20131216866

PATIENT
  Age: 75 Year
  Sex: Male

DRUGS (4)
  1. FINIBAX [Suspect]
     Indication: PNEUMONIA
     Route: 041
     Dates: start: 20130909, end: 20130921
  2. MUCOSTA [Concomitant]
     Route: 065
     Dates: start: 20130907, end: 20130922
  3. ULCERLMIN [Concomitant]
     Route: 065
     Dates: start: 20130907, end: 20130922
  4. VANCOMYCIN [Concomitant]
     Route: 065
     Dates: start: 20130909, end: 20130912

REACTIONS (1)
  - Shock [Fatal]
